FAERS Safety Report 17195679 (Version 2)
Quarter: 2020Q1

REPORT INFORMATION
  Report Type: Spontaneous
  Country: US (occurrence: US)
  Receive Date: 20191224
  Receipt Date: 20200201
  Transmission Date: 20200409
  Serious: No
  Sender: FDA-Public Use
  Company Number: US-TEVA-2019-US-1157254

PATIENT
  Sex: Female

DRUGS (13)
  1. CALCIUM 800 [Concomitant]
  2. ASPIRIN  81 [Concomitant]
     Active Substance: ASPIRIN
  3. CALCIFEROL [Concomitant]
  4. ESTRADIOL. [Concomitant]
     Active Substance: ESTRADIOL
  5. GLIMEPIRIDE. [Concomitant]
     Active Substance: GLIMEPIRIDE
  6. SPRYCEL [Concomitant]
     Active Substance: DASATINIB
  7. CLOTRIMAZOLE. [Concomitant]
     Active Substance: CLOTRIMAZOLE
  8. LISINOPRIL. [Concomitant]
     Active Substance: LISINOPRIL
  9. TRAZODONE [Concomitant]
     Active Substance: TRAZODONE HYDROCHLORIDE
  10. COPAXONE [Suspect]
     Active Substance: GLATIRAMER ACETATE
     Indication: MULTIPLE SCLEROSIS
     Dosage: COPAXONE 40MG THRICE A WEEK
     Route: 058
     Dates: start: 20160202
  11. BENZONATATE. [Concomitant]
     Active Substance: BENZONATATE
  12. METFORMIN [Concomitant]
     Active Substance: METFORMIN HYDROCHLORIDE
  13. MULTIVITAMIN [Concomitant]
     Active Substance: VITAMINS

REACTIONS (2)
  - Rash [Not Recovered/Not Resolved]
  - Rash macular [Not Recovered/Not Resolved]
